FAERS Safety Report 8450061-8 (Version None)
Quarter: 2012Q2

REPORT INFORMATION
  Report Type: 
  Country: None (occurrence: None)
  Receive Date: 20120620
  Receipt Date: 20120612
  Transmission Date: 20120825
  Serious: Yes (Death)
  Sender: FDA-Public Use
  Company Number: US-JNJFOC-20120112995

PATIENT
  Sex: Male
  Weight: 74.84 kg

DRUGS (4)
  1. ASPIRIN [Concomitant]
     Indication: ANTIPLATELET THERAPY
     Dosage: LOW DOSE
     Route: 065
     Dates: start: 20110401, end: 20120105
  2. TRIAMCINOLONE [Concomitant]
     Indication: ANTIINFLAMMATORY THERAPY
     Route: 065
  3. STELARA [Suspect]
     Indication: PSORIASIS
     Route: 058
     Dates: start: 20100701, end: 20120105
  4. STATINS [Concomitant]
     Route: 065

REACTIONS (1)
  - SUDDEN DEATH [None]
